FAERS Safety Report 16113906 (Version 1)
Quarter: 2019Q1

REPORT INFORMATION
  Report Type: Spontaneous
  Country: US (occurrence: US)
  Receive Date: 20190325
  Receipt Date: 20190325
  Transmission Date: 20190418
  Serious: No
  Sender: FDA-Public Use
  Company Number: US-AMGEN-USASP2019043231

PATIENT
  Age: 84 Year
  Sex: Female

DRUGS (3)
  1. CIPROFLOXACIN. [Suspect]
     Active Substance: CIPROFLOXACIN
     Indication: CYSTITIS
  2. PROLIA [Suspect]
     Active Substance: DENOSUMAB
     Indication: OSTEOPOROSIS POSTMENOPAUSAL
     Dosage: 60 MILLIGRAM, Q6MO
     Route: 065
     Dates: start: 201803
  3. CIPROFLOXACIN. [Suspect]
     Active Substance: CIPROFLOXACIN
     Indication: VAGINAL INFECTION
     Route: 065

REACTIONS (4)
  - Confusional state [Not Recovered/Not Resolved]
  - Vaginal infection [Not Recovered/Not Resolved]
  - Nausea [Not Recovered/Not Resolved]
  - Cystitis [Not Recovered/Not Resolved]
